FAERS Safety Report 7812853-5 (Version None)
Quarter: 2011Q4

REPORT INFORMATION
  Report Type: 
  Country: None (occurrence: None)
  Receive Date: 20111013
  Receipt Date: 20111007
  Transmission Date: 20120403
  Serious: Yes (Other)
  Sender: FDA-Public Use
  Company Number: US-ABBOTT-11P-163-0862935-00

PATIENT
  Sex: Male

DRUGS (1)
  1. HUMIRA [Suspect]
     Indication: CROHN'S DISEASE
     Dosage: UNKNOWN DOSAGE
     Dates: start: 20091201

REACTIONS (8)
  - COLOSTOMY [None]
  - TREMOR [None]
  - HYPOAESTHESIA [None]
  - INFECTION [None]
  - HEART RATE DECREASED [None]
  - PARAESTHESIA [None]
  - DYSGRAPHIA [None]
  - PROCEDURAL COMPLICATION [None]
